FAERS Safety Report 15598036 (Version 1)
Quarter: 2018Q4

REPORT INFORMATION
  Report Type: Spontaneous
  Country: IT (occurrence: IT)
  Receive Date: 20181108
  Receipt Date: 20181108
  Transmission Date: 20190205
  Serious: Yes (Hospitalization)
  Sender: FDA-Public Use
  Company Number: IT-009507513-1811ITA002452

PATIENT
  Age: 68 Year
  Sex: Male

DRUGS (1)
  1. INEGY 10MG/40MG COMPRESSE [Suspect]
     Active Substance: EZETIMIBE\SIMVASTATIN
     Indication: HYPERCHOLESTEROLAEMIA
     Dosage: 25 MILLIGRAM, QD; A;SO REPORTED AS HALF A TABLET 10 MG + 40 MG
     Route: 048
     Dates: start: 20090101, end: 20120210

REACTIONS (1)
  - Hepatitis toxic [Recovered/Resolved]

NARRATIVE: CASE EVENT DATE: 20120201
